FAERS Safety Report 8965411 (Version 1)
Quarter: 2012Q4

REPORT INFORMATION
  Report Type: 
  Country: US (occurrence: US)
  Receive Date: 20121214
  Receipt Date: 20121214
  Transmission Date: 20130627
  Serious: Yes (Other)
  Sender: FDA-Public Use
  Company Number: PHHY2012US114368

PATIENT
  Age: 40 Year
  Sex: Female

DRUGS (2)
  1. MINOCYCLINE [Suspect]
     Indication: ACNE
  2. STEROIDS NOS [Concomitant]

REACTIONS (6)
  - Arteritis [Recovering/Resolving]
  - Lividity [Recovering/Resolving]
  - Necrosis [Recovering/Resolving]
  - Skin lesion [Recovering/Resolving]
  - Rash [Recovering/Resolving]
  - Post inflammatory pigmentation change [Recovering/Resolving]
